FAERS Safety Report 21143263 (Version 2)
Quarter: 2023Q1

REPORT INFORMATION
  Report Type: Spontaneous
  Country: US (occurrence: US)
  Receive Date: 20220728
  Receipt Date: 20230130
  Transmission Date: 20230418
  Serious: No
  Sender: FDA-Public Use
  Company Number: US-BoehringerIngelheim-2022-BI-184260

PATIENT
  Age: 77 Year
  Sex: Male

DRUGS (1)
  1. JARDIANCE [Suspect]
     Active Substance: EMPAGLIFLOZIN
     Indication: Product used for unknown indication
     Route: 048
     Dates: start: 20190101, end: 20230130

REACTIONS (5)
  - Rib fracture [Unknown]
  - Blood glucose increased [Recovered/Resolved]
  - Spondylitis [Unknown]
  - Fall [Unknown]
  - Arthritis [Unknown]

NARRATIVE: CASE EVENT DATE: 20220701
